FAERS Safety Report 8459864-7 (Version None)
Quarter: 2012Q2

REPORT INFORMATION
  Report Type: 
  Country: None (occurrence: None)
  Receive Date: 20120622
  Receipt Date: 20120618
  Transmission Date: 20120825
  Serious: Yes (Hospitalization, Other)
  Sender: FDA-Public Use
  Company Number: PHHY2012BR053194

PATIENT
  Sex: Male
  Weight: 105 kg

DRUGS (6)
  1. RASILEZ AMLO [Suspect]
     Dates: start: 20120619
  2. SERUM LIPID REDUCING AGENTS [Concomitant]
     Dosage: 1 DF, A DAY
     Route: 048
  3. ASPIRIN [Concomitant]
     Indication: BLOOD DISORDER
     Dosage: 1 DF, IN THE AFTERNOON
     Route: 048
  4. RASILEZ AMLO [Suspect]
     Indication: HYPERTENSION
     Dosage: 1 DF, A DAY
     Route: 048
  5. METFORMIN HCL [Concomitant]
     Indication: DIABETES MELLITUS
     Dosage: 1 DF, IN THE MORNING
     Route: 048
  6. DIAMICRON [Concomitant]
     Indication: DIABETES MELLITUS
     Dosage: 1 DF, A DAY
     Route: 048

REACTIONS (3)
  - CEREBROVASCULAR ACCIDENT [None]
  - HEMIPLEGIA [None]
  - BLOOD PRESSURE INCREASED [None]
